FAERS Safety Report 19240019 (Version 1)
Quarter: 2021Q2

REPORT INFORMATION
  Report Type: Report from Study
  Country: IT (occurrence: IT)
  Receive Date: 20210510
  Receipt Date: 20210510
  Transmission Date: 20210717
  Serious: Yes (Other)
  Sender: FDA-Public Use
  Company Number: IT-PFIZER INC-2021461613

PATIENT
  Age: 48 Year
  Sex: Female

DRUGS (6)
  1. DOCETAXEL HIKMA [Suspect]
     Active Substance: DOCETAXEL
     Indication: BREAST CANCER
     Dates: start: 20210215
  2. PERJETA [Suspect]
     Active Substance: PERTUZUMAB
     Indication: BREAST CANCER
     Dates: start: 20210215
  3. ONDANSETRON HYDROCHLORIDE. [Concomitant]
     Active Substance: ONDANSETRON HYDROCHLORIDE
     Indication: VOMITING
  4. TRAZIMERA [Suspect]
     Active Substance: TRASTUZUMAB-QYYP
     Indication: BREAST CANCER
     Dates: start: 20210215
  5. TRIMETON [Concomitant]
     Active Substance: CHLORPHENIRAMINE MALEATE
     Indication: ANTIALLERGIC THERAPY
  6. DEXAMETHASONE. [Concomitant]
     Active Substance: DEXAMETHASONE
     Indication: ANTIINFLAMMATORY THERAPY

REACTIONS (11)
  - Mucosal dryness [Recovering/Resolving]
  - Diarrhoea [Recovering/Resolving]
  - Dermatitis acneiform [Recovering/Resolving]
  - Leukopenia [Recovering/Resolving]
  - Alopecia [Recovering/Resolving]
  - Dysgeusia [Recovering/Resolving]
  - Aphthous ulcer [Recovering/Resolving]
  - Salivary hypersecretion [Recovering/Resolving]
  - Xeroderma [Recovering/Resolving]
  - Rhinorrhoea [Recovering/Resolving]
  - Nasal dryness [Recovering/Resolving]

NARRATIVE: CASE EVENT DATE: 20210215
